FAERS Safety Report 6000205-2 (Version None)
Quarter: 2008Q4

REPORT INFORMATION
  Report Type: 
  Country: None (occurrence: None)
  Receive Date: 20081215
  Receipt Date: 20081210
  Transmission Date: 20090506
  Serious: Yes (Other)
  Sender: FDA-Public Use
  Company Number: US-ASTRAZENECA-2008UW12262

PATIENT
  Age: 40 Year
  Sex: Female
  Weight: 97.1 kg

DRUGS (13)
  1. SEROQUEL [Suspect]
     Indication: DEPRESSION
     Route: 048
     Dates: start: 20000101, end: 20020301
  2. SEROQUEL [Suspect]
     Route: 048
     Dates: start: 20020301, end: 20020701
  3. SEROQUEL [Suspect]
     Route: 048
     Dates: start: 20020901, end: 20040501
  4. SEROQUEL [Suspect]
     Route: 048
     Dates: start: 20040301, end: 20040401
  5. SEROQUEL [Suspect]
     Route: 048
     Dates: start: 20040501, end: 20060101
  6. SEROQUEL [Suspect]
     Route: 048
     Dates: start: 20041001, end: 20041201
  7. SEROQUEL [Suspect]
     Route: 048
     Dates: start: 20080601
  8. ALLI [Concomitant]
     Dates: start: 20070101
  9. ABILIFY [Concomitant]
     Dates: start: 20050701, end: 20050901
  10. TRAZODONE HCL [Concomitant]
     Dosage: 50MG, 100MG, 150MG
     Dates: start: 20000901
  11. CYMBALTA [Concomitant]
     Dosage: 40MG, 60MG
     Dates: start: 20080801
  12. WELLBUTRIN [Concomitant]
     Dates: start: 20020101, end: 20080801
  13. LAMICTAL [Concomitant]
     Dates: start: 20080601

REACTIONS (6)
  - BLOOD TRIGLYCERIDES INCREASED [None]
  - CYST REMOVAL [None]
  - DIABETES MELLITUS [None]
  - HYSTERECTOMY [None]
  - NEOPLASM [None]
  - OBESITY [None]
